FAERS Safety Report 7000340-6 (Version None)
Quarter: 2010Q3

REPORT INFORMATION
  Report Type: 
  Country: None (occurrence: None)
  Receive Date: 20100902
  Receipt Date: 20100304
  Transmission Date: 20110219
  Serious: Yes (Disabling, Other)
  Sender: FDA-Public Use
  Company Number: 226664USA

PATIENT
  Sex: Female

DRUGS (1)
  1. METOCLOPRAMIDE [Suspect]
     Indication: GASTROINTESTINAL DISORDER
     Dosage: 30 TO 40 MG PER DAY,ORAL
     Route: 048
     Dates: start: 20081001, end: 20090101

REACTIONS (6)
  - DEFORMITY [None]
  - DEPRESSION [None]
  - DYSPHAGIA [None]
  - MASTICATION DISORDER [None]
  - SPEECH DISORDER [None]
  - TARDIVE DYSKINESIA [None]
